FAERS Safety Report 8165877-5 (Version None)
Quarter: 2012Q1

REPORT INFORMATION
  Report Type: 
  Country: None (occurrence: None)
  Receive Date: 20120227
  Receipt Date: 20111128
  Transmission Date: 20120608
  Serious: No
  Sender: FDA-Public Use
  Company Number: US-MYLANLABS-2011S1022856

PATIENT
  Age: 16 Year
  Sex: Male
  Weight: 72.58 kg

DRUGS (1)
  1. AMNESTEEM [Suspect]
     Indication: ACNE
     Route: 048
     Dates: start: 20110831, end: 20111004

REACTIONS (2)
  - MOOD ALTERED [None]
  - AGGRESSION [None]
